FAERS Safety Report 5489152-2 (Version None)
Quarter: 2007Q3

REPORT INFORMATION
  Report Type: 
  Country: None (occurrence: None)
  Receive Date: 20070925
  Receipt Date: 20070730
  Transmission Date: 20080115
  Serious: No
  Sender: FDA-Public Use
  Company Number: 2007US001190

PATIENT
  Age: 88 Year
  Sex: Female

DRUGS (1)
  1. VESICARE [Suspect]
     Indication: URINARY INCONTINENCE

REACTIONS (4)
  - CONFUSIONAL STATE [None]
  - CONSTIPATION [None]
  - DRUG INEFFECTIVE [None]
  - VISION BLURRED [None]
